FAERS Safety Report 23042209 (Version 1)
Quarter: 2023Q4

REPORT INFORMATION
  Report Type: Spontaneous
  Country: US (occurrence: US)
  Receive Date: 20231008
  Receipt Date: 20231008
  Transmission Date: 20240109
  Serious: No
  Sender: FDA-Public Use
  Company Number: US-HORIZON THERAPEUTICS-HZN-2023-004839

PATIENT

DRUGS (62)
  1. KRYSTEXXA [Suspect]
     Active Substance: PEGLOTICASE
     Indication: Gouty tophus
     Dosage: FIRST INFUSION
     Route: 042
     Dates: start: 20220321
  2. KRYSTEXXA [Suspect]
     Active Substance: PEGLOTICASE
     Dosage: SECOND INFUSION
     Route: 042
     Dates: start: 20220404
  3. KRYSTEXXA [Suspect]
     Active Substance: PEGLOTICASE
     Dosage: THIRD INFUSION
     Route: 042
     Dates: start: 20220418
  4. KRYSTEXXA [Suspect]
     Active Substance: PEGLOTICASE
     Dosage: FOURTH INFUSION
     Route: 042
     Dates: start: 20220502
  5. KRYSTEXXA [Suspect]
     Active Substance: PEGLOTICASE
     Dosage: FIFTH INFUSION
     Route: 042
     Dates: start: 20220516
  6. KRYSTEXXA [Suspect]
     Active Substance: PEGLOTICASE
     Dosage: SIXTH INFUSION
     Route: 042
     Dates: start: 20220606
  7. KRYSTEXXA [Suspect]
     Active Substance: PEGLOTICASE
     Dosage: SEVENTH INFUSION
     Route: 042
     Dates: start: 20220620
  8. KRYSTEXXA [Suspect]
     Active Substance: PEGLOTICASE
     Dosage: EIGHTH INFUSION
     Route: 042
     Dates: start: 20220711
  9. KRYSTEXXA [Suspect]
     Active Substance: PEGLOTICASE
     Dosage: 9TH INFUSION
     Route: 042
     Dates: start: 20220722
  10. KRYSTEXXA [Suspect]
     Active Substance: PEGLOTICASE
     Dosage: 10TH INFUSION
     Route: 042
     Dates: start: 20220810
  11. KRYSTEXXA [Suspect]
     Active Substance: PEGLOTICASE
     Dosage: 11TH INFUSION
     Route: 042
     Dates: start: 20220819
  12. KRYSTEXXA [Suspect]
     Active Substance: PEGLOTICASE
     Dosage: 12TH INFUSION
     Route: 042
     Dates: start: 20220912
  13. KRYSTEXXA [Suspect]
     Active Substance: PEGLOTICASE
     Dosage: 13TH INFUSION
     Route: 042
     Dates: start: 20220926
  14. KRYSTEXXA [Suspect]
     Active Substance: PEGLOTICASE
     Dosage: 14TH INFUSION
     Route: 042
     Dates: start: 20221010
  15. KRYSTEXXA [Suspect]
     Active Substance: PEGLOTICASE
     Dosage: 15TH INFUSION
     Route: 042
     Dates: start: 20221024
  16. KRYSTEXXA [Suspect]
     Active Substance: PEGLOTICASE
     Dosage: 16TH INFUSION
     Route: 042
     Dates: start: 20221107
  17. METHOTREXATE [Suspect]
     Active Substance: METHOTREXATE
     Indication: Product used for unknown indication
     Dosage: 15 MG, WEEKLY
     Route: 058
  18. FEXOFENADINE [Concomitant]
     Active Substance: FEXOFENADINE HYDROCHLORIDE
     Dosage: 180 MG (DAY OF INFUSION) DOSE 1
     Route: 048
     Dates: start: 20220321
  19. FEXOFENADINE [Concomitant]
     Active Substance: FEXOFENADINE HYDROCHLORIDE
     Dosage: 180 MG (NIGHT OF INFUSION) DOSE 2
     Route: 048
     Dates: start: 20220404
  20. FEXOFENADINE [Concomitant]
     Active Substance: FEXOFENADINE HYDROCHLORIDE
     Dosage: 180 MG (NIGHT OF INFUSION) DOSE 3
     Route: 048
     Dates: start: 20220418
  21. FEXOFENADINE [Concomitant]
     Active Substance: FEXOFENADINE HYDROCHLORIDE
     Dosage: 180 MG (NIGHT OF INFUSION) DOSE 4
     Route: 048
     Dates: start: 20220502
  22. FEXOFENADINE [Concomitant]
     Active Substance: FEXOFENADINE HYDROCHLORIDE
     Dosage: 180 MG (NIGHT OF INFUSION) DOSE 5
     Route: 048
     Dates: start: 20220516
  23. FEXOFENADINE [Concomitant]
     Active Substance: FEXOFENADINE HYDROCHLORIDE
     Dosage: 180 MG (NIGHT OF INFUSION) DOSE 6
     Route: 048
     Dates: start: 20220606
  24. FEXOFENADINE [Concomitant]
     Active Substance: FEXOFENADINE HYDROCHLORIDE
     Dosage: 180 MG (NIGHT OF INFUSION) DOSE 7
     Route: 048
     Dates: start: 20220620
  25. FEXOFENADINE [Concomitant]
     Active Substance: FEXOFENADINE HYDROCHLORIDE
     Dosage: 180 MG (DAY OF INFUSION) DOSE 8
     Route: 048
     Dates: start: 20220711
  26. FEXOFENADINE [Concomitant]
     Active Substance: FEXOFENADINE HYDROCHLORIDE
     Dosage: 180 MG (NIGHT OF INFUSION) DOSE 9
     Route: 048
     Dates: start: 20220722
  27. FEXOFENADINE [Concomitant]
     Active Substance: FEXOFENADINE HYDROCHLORIDE
     Dosage: 180 MG (NIGHT OF INFUSION) DOSE 10
     Route: 048
     Dates: start: 20220808
  28. FEXOFENADINE [Concomitant]
     Active Substance: FEXOFENADINE HYDROCHLORIDE
     Dosage: 180 MG (DAY OF INFUSION) DOSE 11
     Route: 048
     Dates: start: 20220819
  29. FEXOFENADINE [Concomitant]
     Active Substance: FEXOFENADINE HYDROCHLORIDE
     Dosage: 180 MG (DAY OF INFUSION) DOSE 12
     Route: 048
     Dates: start: 20220912
  30. FEXOFENADINE [Concomitant]
     Active Substance: FEXOFENADINE HYDROCHLORIDE
     Dosage: 180 MG (NIGHT OF INFUSION) DOSE 13
     Route: 048
     Dates: start: 20220926
  31. FEXOFENADINE [Concomitant]
     Active Substance: FEXOFENADINE HYDROCHLORIDE
     Dosage: 180 MG (DAY OF INFUSION) DOSE 14
     Route: 048
     Dates: start: 20221010
  32. FEXOFENADINE [Concomitant]
     Active Substance: FEXOFENADINE HYDROCHLORIDE
     Dosage: 180 MG (NIGHT OF INFUSION) DOSE 15
     Route: 048
     Dates: start: 20221024
  33. FEXOFENADINE [Concomitant]
     Active Substance: FEXOFENADINE HYDROCHLORIDE
     Dosage: 180 MG (NIGHT OF INFUSION) DOSE 16
     Route: 048
     Dates: start: 20221107
  34. UNSPECIFIED INGREDIENT [Concomitant]
     Active Substance: UNSPECIFIED INGREDIENT
     Dosage: 125 MG (DAY OF INFUSION) DOSE 1
     Route: 042
  35. UNSPECIFIED INGREDIENT [Concomitant]
     Active Substance: UNSPECIFIED INGREDIENT
     Dosage: 125 MG (DAY OF INFUSION) DOSE 2
     Route: 042
  36. UNSPECIFIED INGREDIENT [Concomitant]
     Active Substance: UNSPECIFIED INGREDIENT
     Dosage: 125 MG (DAY OF INFUSION) DOSE 3
     Route: 042
  37. UNSPECIFIED INGREDIENT [Concomitant]
     Active Substance: UNSPECIFIED INGREDIENT
     Dosage: 125 MG (DAY OF INFUSION) DOSE 4
     Route: 042
  38. UNSPECIFIED INGREDIENT [Concomitant]
     Active Substance: UNSPECIFIED INGREDIENT
     Dosage: 62.5 MG (DAY OF INFUSION) DOSE 5
     Route: 042
  39. UNSPECIFIED INGREDIENT [Concomitant]
     Active Substance: UNSPECIFIED INGREDIENT
     Dosage: 31.25 MG (DAY OF INFUSION) DOSE 6
     Route: 042
  40. UNSPECIFIED INGREDIENT [Concomitant]
     Active Substance: UNSPECIFIED INGREDIENT
     Dosage: 125 MG (DAY OF INFUSION) DOSE 7
     Route: 042
  41. UNSPECIFIED INGREDIENT [Concomitant]
     Active Substance: UNSPECIFIED INGREDIENT
     Dosage: 125 MG (DAY OF INFUSION) DOSE 8
     Route: 042
  42. VARENICLINE [Concomitant]
     Active Substance: VARENICLINE
     Dosage: UNK
     Route: 048
  43. METOPROLOL SUCCINATE [Concomitant]
     Active Substance: METOPROLOL SUCCINATE
     Dosage: 25 MG, QD
     Route: 048
  44. ATORVASTATIN CALCIUM [Concomitant]
     Active Substance: ATORVASTATIN CALCIUM
     Dosage: 10 MG, QD
     Route: 048
  45. RIVAROXABAN [Concomitant]
     Active Substance: RIVAROXABAN
     Dosage: 2.5 MG, QD
     Route: 048
  46. FOLIC ACID [Concomitant]
     Active Substance: FOLIC ACID
     Dosage: 1 MG, QD
     Route: 048
     Dates: start: 20220321
  47. FOLIC ACID [Concomitant]
     Active Substance: FOLIC ACID
     Dosage: 1 MG, QD
     Route: 048
     Dates: start: 20220404
  48. FOLIC ACID [Concomitant]
     Active Substance: FOLIC ACID
     Dosage: 1 MG, QD
     Route: 048
     Dates: start: 20220418
  49. FOLIC ACID [Concomitant]
     Active Substance: FOLIC ACID
     Dosage: 1 MG, QD
     Route: 048
     Dates: start: 20220502
  50. FOLIC ACID [Concomitant]
     Active Substance: FOLIC ACID
     Dosage: 1 MG, QD
     Route: 048
     Dates: start: 20220516
  51. FOLIC ACID [Concomitant]
     Active Substance: FOLIC ACID
     Dosage: 1 MG, QD
     Route: 048
     Dates: start: 20220606
  52. FOLIC ACID [Concomitant]
     Active Substance: FOLIC ACID
     Dosage: 1 MG, QD
     Route: 048
     Dates: start: 20220620
  53. FOLIC ACID [Concomitant]
     Active Substance: FOLIC ACID
     Dosage: 1 MG, QD
     Route: 048
     Dates: start: 20220711
  54. FOLIC ACID [Concomitant]
     Active Substance: FOLIC ACID
     Dosage: 1 MG, QD
     Route: 048
     Dates: start: 20220722
  55. FOLIC ACID [Concomitant]
     Active Substance: FOLIC ACID
     Dosage: 1 MG, QD
     Route: 048
     Dates: start: 20220808
  56. FOLIC ACID [Concomitant]
     Active Substance: FOLIC ACID
     Dosage: 1 MG, QD
     Route: 048
     Dates: start: 20220819
  57. FOLIC ACID [Concomitant]
     Active Substance: FOLIC ACID
     Dosage: 1 MG, QD
     Route: 048
     Dates: start: 20220912
  58. FOLIC ACID [Concomitant]
     Active Substance: FOLIC ACID
     Dosage: 1 MG, QD
     Route: 048
     Dates: start: 20220926
  59. FOLIC ACID [Concomitant]
     Active Substance: FOLIC ACID
     Dosage: 1 MG, QD
     Route: 048
     Dates: start: 20221010
  60. FOLIC ACID [Concomitant]
     Active Substance: FOLIC ACID
     Dosage: 1 MG, QD
     Route: 048
     Dates: start: 20221024
  61. FOLIC ACID [Concomitant]
     Active Substance: FOLIC ACID
     Dosage: 1 MG, QD
     Route: 048
     Dates: start: 20220711
  62. METHYLPREDNISOLONE [Concomitant]
     Active Substance: METHYLPREDNISOLONE
     Dosage: 125 MG
     Route: 042

REACTIONS (3)
  - Gout [Recovering/Resolving]
  - Blood uric acid increased [Unknown]
  - Off label use [Unknown]

NARRATIVE: CASE EVENT DATE: 20220321
